FAERS Safety Report 11242805 (Version 1)
Quarter: 2015Q3

REPORT INFORMATION
  Report Type: Spontaneous
  Country: CA (occurrence: CA)
  Receive Date: 20150707
  Receipt Date: 20150707
  Transmission Date: 20151125
  Serious: Yes (Other)
  Sender: FDA-Public Use
  Company Number: CA-TEVA-575961ACC

PATIENT
  Age: 30 Year
  Sex: Male
  Weight: 70 kg

DRUGS (20)
  1. RISPERIDONE. [Suspect]
     Active Substance: RISPERIDONE
     Indication: BIPOLAR DISORDER
     Dosage: 4 MILLIGRAM DAILY;
     Route: 065
  2. LITHIUM CARBONATE. [Concomitant]
     Active Substance: LITHIUM CARBONATE
     Route: 065
  3. NIZORAL - 2% [Concomitant]
     Route: 065
  4. CLINDOXYL [Concomitant]
     Active Substance: BENZOYL PEROXIDE\CLINDAMYCIN PHOSPHATE
     Route: 065
  5. LACTASE ENZYME [Concomitant]
     Route: 065
  6. UREMOL HC CREAM [Concomitant]
     Route: 065
  7. DOCUSATE SODIUM. [Concomitant]
     Active Substance: DOCUSATE SODIUM
     Route: 065
  8. HYDERM [Concomitant]
     Route: 065
  9. RISPERDAL [Concomitant]
     Active Substance: RISPERIDONE
     Route: 065
  10. GLYCERIN SUPPOSITORIES [Concomitant]
     Route: 065
  11. PERIDEX ORAL RINSE [Concomitant]
     Route: 065
  12. SALINEX [Concomitant]
     Route: 065
  13. BENADRYL [Concomitant]
     Active Substance: DIPHENHYDRAMINE HYDROCHLORIDE
     Route: 065
  14. CALCIUM CARBONATE. [Concomitant]
     Active Substance: CALCIUM CARBONATE
     Route: 065
  15. PMS-BENZTROPINE [Concomitant]
     Route: 065
  16. VITAMIN D [Concomitant]
     Active Substance: CHOLECALCIFEROL
     Route: 065
  17. MINERAL OIL. [Concomitant]
     Active Substance: MINERAL OIL
     Route: 065
  18. SYNTHROID [Concomitant]
     Active Substance: LEVOTHYROXINE SODIUM
     Route: 065
  19. ELOCOM [Concomitant]
     Active Substance: MOMETASONE FUROATE
     Route: 065
  20. ZOVIRAX [Concomitant]
     Active Substance: ACYCLOVIR
     Route: 065

REACTIONS (5)
  - Product substitution issue [Unknown]
  - Aggression [Unknown]
  - Abnormal behaviour [Unknown]
  - Condition aggravated [Unknown]
  - Drug ineffective [Unknown]
